FAERS Safety Report 6139569-8 (Version None)
Quarter: 2009Q2

REPORT INFORMATION
  Report Type: 
  Country: None (occurrence: None)
  Receive Date: 20090401
  Receipt Date: 20090324
  Transmission Date: 20091009
  Serious: Yes (Hospitalization)
  Sender: FDA-Public Use
  Company Number: BR-NOVOPROD-285132

PATIENT
  Age: 60 Year
  Sex: Female
  Weight: 68 kg

DRUGS (11)
  1. NOVORAPID PENFILL [Suspect]
     Indication: TYPE 2 DIABETES MELLITUS
     Dosage: 8 U, QD
     Route: 058
  2. HUMULIN N                          /00646001/ [Suspect]
     Indication: TYPE 2 DIABETES MELLITUS
     Dosage: 34 UNITS MORNING + 16 UNITS AT NIGHT
     Route: 058
  3. LEVOFLOXACIN [Concomitant]
     Indication: EAR INFECTION
     Dosage: 1 TAB, QD (500 MG)
     Route: 048
     Dates: start: 20090304
  4. LOSARTAN POTASICO [Concomitant]
     Indication: BLOOD PRESSURE
     Dosage: 1 TAB, QD (50MG)
     Route: 048
     Dates: start: 20090304
  5. GLIMEPIRIDE [Concomitant]
     Indication: DIABETES MELLITUS
     Dosage: 1 TAB, QD
     Route: 048
     Dates: start: 20090304
  6. ACID ACETYLSALICYLIC [Concomitant]
     Indication: PROPHYLAXIS
     Dosage: 2 TAB, QD
     Route: 048
     Dates: start: 20090304
  7. B COMPLEX                          /00212701/ [Concomitant]
     Dosage: 3 TAB, QD
     Route: 048
     Dates: start: 20090304
  8. DEXAMETHASONE [Concomitant]
     Indication: EAR INFECTION
     Dosage: 2 TAB, QD
     Route: 048
     Dates: start: 20090304
  9. PARACETAMOL [Concomitant]
     Route: 048
     Dates: start: 20090304
  10. CARBINOXAMINE [Concomitant]
     Route: 048
     Dates: start: 20090304
  11. FENILEFRIN [Concomitant]
     Route: 048
     Dates: start: 20090304

REACTIONS (2)
  - BLOOD GLUCOSE INCREASED [None]
  - FACIAL PALSY [None]
